FAERS Safety Report 7586626-5 (Version None)
Quarter: 2011Q3

REPORT INFORMATION
  Report Type: 
  Country: None (occurrence: None)
  Receive Date: 20110701
  Receipt Date: 20110621
  Transmission Date: 20111222
  Serious: Yes (Death, Hospitalization, Other)
  Sender: FDA-Public Use
  Company Number: ZA-ABBOTT-11P-008-0723254-00

PATIENT
  Sex: Male

DRUGS (3)
  1. LOPINAVIR/RITONAVIR [Suspect]
     Indication: HIV INFECTION
     Route: 048
     Dates: start: 20110310
  2. TRUVADA [Concomitant]
     Indication: PRODUCT USED FOR UNKNOWN INDICATION
     Dates: start: 20110310
  3. SCAPEX [Concomitant]
     Indication: GASTROENTERITIS

REACTIONS (3)
  - PULMONARY TUBERCULOSIS [None]
  - RENAL FAILURE [None]
  - SEPSIS [None]
